FAERS Safety Report 26066855 (Version 2)
Quarter: 2025Q4

REPORT INFORMATION
  Report Type: Spontaneous
  Country: US (occurrence: US)
  Receive Date: 20251119
  Receipt Date: 20251121
  Transmission Date: 20260117
  Serious: Yes (Life-Threatening, Hospitalization, Other)
  Sender: SANDOZ
  Company Number: US-SANDOZ-SDZ2025US086772

PATIENT
  Age: 72 Year
  Sex: Male

DRUGS (7)
  1. CEFTRIAXONE [Suspect]
     Active Substance: CEFTRIAXONE
     Indication: Postoperative wound infection
     Dosage: UNK
     Route: 065
     Dates: start: 202509
  2. CEFEPIME [Suspect]
     Active Substance: CEFEPIME HYDROCHLORIDE
     Indication: Postoperative wound infection
     Dosage: UNK
     Route: 065
     Dates: start: 202509
  3. METRONIDAZOLE [Suspect]
     Active Substance: METRONIDAZOLE
     Indication: Postoperative wound infection
     Dosage: UNK
     Route: 065
     Dates: start: 202509
  4. VANCOMYCIN [Suspect]
     Active Substance: VANCOMYCIN
     Indication: Postoperative wound infection
     Dosage: UNK
     Route: 042
     Dates: start: 202509
  5. VANCOMYCIN [Suspect]
     Active Substance: VANCOMYCIN
     Indication: Postoperative wound infection
     Dosage: UNK
     Route: 048
     Dates: start: 202509
  6. APIXABAN [Concomitant]
     Active Substance: APIXABAN
     Indication: Anticoagulant therapy
     Dosage: UNK
     Route: 065
     Dates: start: 2025
  7. HEPARIN [Concomitant]
     Active Substance: HEPARIN SODIUM
     Indication: Anticoagulant therapy
     Dosage: UNK
     Route: 065
     Dates: start: 2025

REACTIONS (1)
  - Immune thrombocytopenia [Recovering/Resolving]

NARRATIVE: CASE EVENT DATE: 20250101
